FAERS Safety Report 10619170 (Version 1)
Quarter: 2014Q4

REPORT INFORMATION
  Report Type: Spontaneous
  Country: GB (occurrence: None)
  Receive Date: 20141126
  Receipt Date: 20141126
  Transmission Date: 20150529
  Serious: Yes (Hospitalization, Other)
  Sender: FDA-Public Use
  Company Number: GB-DEXPHARM-20140899

PATIENT
  Age: 87 Year
  Sex: Male

DRUGS (6)
  1. COCODAMOL [Suspect]
     Active Substance: ACETAMINOPHEN\CODEINE PHOSPHATE
     Indication: HERPES ZOSTER
     Dosage: DOSAGE TEXT: 30/500?DISEL 2 DF DOSAGE FORM?SEP. DOSAGES/INTERVAL: 4 IN 1 DAY?ORAL
     Route: 048
     Dates: end: 20110719
  2. HYDROXOCOBALAMIIN [Concomitant]
  3. QUININE SULFATE. [Concomitant]
     Active Substance: QUININE SULFATE
  4. IPRATROPIUM BROMIDE. [Concomitant]
     Active Substance: IPRATROPIUM BROMIDE
  5. CLENIL MODULITE [Concomitant]
     Active Substance: BECLOMETHASONE DIPROPIONATE
  6. RAMIPRIL. [Suspect]
     Active Substance: RAMIPRIL
     Dosage: DOSAGE TEXT: IN THE MORNING
     Route: 048
     Dates: start: 20110520, end: 20110615

REACTIONS (17)
  - Hyponatraemia [None]
  - Vomiting [None]
  - Hypophagia [None]
  - Inadequate analgesia [None]
  - Dehydration [None]
  - Dyspnoea [None]
  - Lower respiratory tract infection [None]
  - Chronic obstructive pulmonary disease [None]
  - Hypoxia [None]
  - Cholelithiasis [None]
  - Renal cyst [None]
  - Flatulence [None]
  - Wheezing [None]
  - Drug interaction [None]
  - Hepatic cyst [None]
  - Acute kidney injury [None]
  - Confusional state [None]

NARRATIVE: CASE EVENT DATE: 20110719
